FAERS Safety Report 19047684 (Version 3)
Quarter: 2021Q1

REPORT INFORMATION
  Report Type: Spontaneous
  Country: FR (occurrence: FR)
  Receive Date: 20210324
  Receipt Date: 20210329
  Transmission Date: 20210420
  Serious: Yes (Hospitalization, Other)
  Sender: FDA-Public Use
  Company Number: FR-JNJFOC-20210328868

PATIENT
  Age: 39 Year
  Sex: Male
  Weight: 80 kg

DRUGS (5)
  1. NORVIR [Interacting]
     Active Substance: RITONAVIR
     Indication: HIV INFECTION
     Dosage: 200 MG, ONCE A DAY
     Route: 048
     Dates: start: 2020
  2. JANUVIA [Concomitant]
     Active Substance: SITAGLIPTIN PHOSPHATE
     Dosage: UNK
     Route: 065
  3. NOVONORM [Concomitant]
     Active Substance: REPAGLINIDE
     Dosage: UNK
     Route: 065
  4. PREZISTA [Suspect]
     Active Substance: DARUNAVIR ETHANOLATE
     Indication: HIV INFECTION
     Dosage: 1200 MG, ONCE A DAY
     Route: 048
     Dates: start: 2020
  5. FLUCONAZOLE. [Suspect]
     Active Substance: FLUCONAZOLE
     Indication: CRYPTOCOCCOSIS
     Dosage: 200 MG, ONCE A DAY
     Route: 048

REACTIONS (3)
  - Hepatocellular injury [Recovering/Resolving]
  - Drug interaction [Recovered/Resolved]
  - Overdose [Recovered/Resolved]

NARRATIVE: CASE EVENT DATE: 202101
